FAERS Safety Report 4791322-3 (Version None)
Quarter: 2005Q4

REPORT INFORMATION
  Report Type: 
  Country: None (occurrence: None)
  Receive Date: 20051007
  Receipt Date: 20050928
  Transmission Date: 20060501
  Serious: Yes (Hospitalization, Disabling, Other)
  Sender: FDA-Public Use
  Company Number: GR-JNJFOC-20050906479

PATIENT
  Sex: Male
  Weight: 80 kg

DRUGS (5)
  1. REMICADE [Suspect]
     Dosage: 3RD INFUSION.
     Route: 042
  2. REMICADE [Suspect]
     Dosage: 2ND INFUSION.
     Route: 042
  3. REMICADE [Suspect]
     Indication: CROHN'S DISEASE
     Dosage: 1ST INFUSION.
     Route: 042
  4. AZATHIOPRINE [Concomitant]
     Indication: CROHN'S DISEASE
     Dosage: YEARS AGO.
     Route: 048
  5. SALOFALK [Concomitant]
     Indication: CROHN'S DISEASE
     Dosage: YEARS AGO.
     Route: 048

REACTIONS (7)
  - ANORECTAL DISORDER [None]
  - BLADDER DISORDER [None]
  - CHOLECYSTITIS ACUTE [None]
  - HYPOAESTHESIA [None]
  - INFUSION RELATED REACTION [None]
  - PARAPLEGIA [None]
  - SENSORY LOSS [None]
